FAERS Safety Report 21908583 (Version 6)
Quarter: 2023Q2

REPORT INFORMATION
  Report Type: Spontaneous
  Country: US (occurrence: US)
  Receive Date: 20230125
  Receipt Date: 20230413
  Transmission Date: 20230722
  Serious: Yes (Other)
  Sender: FDA-Public Use
  Company Number: US-PFIZER INC-202300034466

PATIENT
  Age: 66 Year
  Sex: Male

DRUGS (1)
  1. NICOTROL [Suspect]
     Active Substance: NICOTINE
     Indication: Smoking cessation therapy
     Dosage: UNK
     Route: 055

REACTIONS (11)
  - Drug dependence [Unknown]
  - Withdrawal syndrome [Unknown]
  - Delirium [Unknown]
  - Hallucination [Unknown]
  - Tremor [Unknown]
  - Pyrexia [Unknown]
  - Hyperhidrosis [Unknown]
  - Feeling cold [Unknown]
  - Emphysema [Unknown]
  - Feeling abnormal [Unknown]
  - Wrong technique in product usage process [Unknown]
